FAERS Safety Report 21937838 (Version 2)
Quarter: 2023Q1

REPORT INFORMATION
  Report Type: Report from Study
  Country: US (occurrence: US)
  Receive Date: 20230201
  Receipt Date: 20230208
  Transmission Date: 20230417
  Serious: Yes (Other)
  Sender: FDA-Public Use
  Company Number: US-ALLERGAN-2302321US

PATIENT
  Sex: Female

DRUGS (1)
  1. BOTULINUM TOXIN TYPE A [Suspect]
     Active Substance: BOTULINUM TOXIN TYPE A
     Indication: Migraine
     Dosage: UNK, SINGLE
     Dates: start: 2018, end: 2018

REACTIONS (4)
  - Macular degeneration [Unknown]
  - Wrong technique in product usage process [Unknown]
  - Back pain [Unknown]
  - Mephisto sign [Unknown]

NARRATIVE: CASE EVENT DATE: 20180101
